FAERS Safety Report 25044114 (Version 1)
Quarter: 2025Q1

REPORT INFORMATION
  Report Type: Spontaneous
  Country: CN (occurrence: CN)
  Receive Date: 20250306
  Receipt Date: 20250306
  Transmission Date: 20250408
  Serious: Yes (Other)
  Sender: SANOFI AVENTIS
  Company Number: CN-SA-2025SA065084

PATIENT
  Age: 46 Year
  Sex: Male
  Weight: 76 kg

DRUGS (4)
  1. HYDROCHLOROTHIAZIDE\IRBESARTAN [Suspect]
     Active Substance: HYDROCHLOROTHIAZIDE\IRBESARTAN
     Indication: Blood pressure increased
     Dosage: 150 MG, QD
     Route: 048
     Dates: start: 20250222, end: 20250224
  2. LERCANIDIPINE HYDROCHLORIDE [Concomitant]
     Active Substance: LERCANIDIPINE HYDROCHLORIDE
  3. ASPIRIN [Concomitant]
     Active Substance: ASPIRIN
  4. ATORVASTATIN CALCIUM [Concomitant]
     Active Substance: ATORVASTATIN CALCIUM

REACTIONS (5)
  - Herpes virus infection [Unknown]
  - Rash erythematous [Recovered/Resolved]
  - Angioedema [Recovering/Resolving]
  - Lip swelling [Unknown]
  - Lip erythema [Unknown]

NARRATIVE: CASE EVENT DATE: 20250222
